FAERS Safety Report 7985378-4 (Version None)
Quarter: 2011Q4

REPORT INFORMATION
  Report Type: 
  Country: None (occurrence: None)
  Receive Date: 20111216
  Receipt Date: 20111201
  Transmission Date: 20120403
  Serious: Yes (Other)
  Sender: FDA-Public Use
  Company Number: US-ROCHE-1010291

PATIENT
  Sex: Female

DRUGS (3)
  1. PEGINTERFERON ALFA-2A [Suspect]
     Indication: HEPATITIS C
     Route: 058
     Dates: start: 20110121
  2. COPEGUS [Suspect]
     Indication: HEPATITIS C
     Dates: start: 20110121
  3. BOCEPREVIR [Suspect]
     Indication: HEPATITIS C
     Route: 048
     Dates: start: 20110907, end: 20111130

REACTIONS (8)
  - THERAPEUTIC RESPONSE DECREASED [None]
  - PAIN [None]
  - FATIGUE [None]
  - PYREXIA [None]
  - STRESS [None]
  - WEIGHT INCREASED [None]
  - SWELLING [None]
  - ERYTHEMA [None]
